FAERS Safety Report 8830579 (Version 1)
Quarter: 2012Q4

REPORT INFORMATION
  Report Type: 
  Country: US (occurrence: US)
  Receive Date: 20121009
  Receipt Date: 20121009
  Transmission Date: 20130627
  Serious: Yes (Hospitalization, Disabling, Other)
  Sender: FDA-Public Use
  Company Number: US-JNJFOC-20121001100

PATIENT

DRUGS (1)
  1. RISPERDAL [Suspect]
     Indication: BIPOLAR DISORDER
     Route: 065

REACTIONS (5)
  - Disability [Unknown]
  - Hospitalisation [Unknown]
  - Brain injury [Unknown]
  - Performance status decreased [Unknown]
  - Cognitive disorder [Unknown]
